FAERS Safety Report 7075039-0 (Version None)
Quarter: 2010Q4

REPORT INFORMATION
  Report Type: 
  Country: None (occurrence: None)
  Receive Date: 20101029
  Receipt Date: 20100128
  Transmission Date: 20110411
  Serious: No
  Sender: FDA-Public Use
  Company Number: US-WYE-H13303310

PATIENT
  Age: 70 Year
  Sex: Male
  Weight: 81.72 kg

DRUGS (6)
  1. ADVIL PM [Suspect]
     Indication: INSOMNIA
     Dosage: 2 CAPLETS AT BED TIME
     Route: 048
     Dates: start: 20100127, end: 20100127
  2. TOLTERODINE TARTRATE [Concomitant]
  3. PLAVIX [Concomitant]
  4. NIASPAN [Concomitant]
  5. ZETIA [Concomitant]
  6. VERAPAMIL [Concomitant]

REACTIONS (1)
  - DIZZINESS [None]
